FAERS Safety Report 13893721 (Version 2)
Quarter: 2017Q4

REPORT INFORMATION
  Report Type: Report from Study
  Country: US (occurrence: US)
  Receive Date: 20170822
  Receipt Date: 20171012
  Transmission Date: 20180320
  Serious: Yes (Hospitalization)
  Sender: FDA-Public Use
  Company Number: US-JNJFOC-20170818584

PATIENT
  Sex: Female

DRUGS (16)
  1. HYDROCHLOROTHIAZIDE W/LISINOPRIL [Concomitant]
     Active Substance: HYDROCHLOROTHIAZIDE\LISINOPRIL
  2. LOPRESSOR [Concomitant]
     Active Substance: METOPROLOL TARTRATE
  3. IMBRUVICA [Suspect]
     Active Substance: IBRUTINIB
     Indication: CHRONIC LYMPHOCYTIC LEUKAEMIA
     Route: 048
     Dates: start: 20161115
  4. VITAMIN D [Concomitant]
     Active Substance: CHOLECALCIFEROL
  5. HYDROCORTISONE SODIUM SUCCINATE [Concomitant]
     Active Substance: HYDROCORTISONE SODIUM SUCCINATE
  6. TRIAMCINOLONE [Concomitant]
     Active Substance: TRIAMCINOLONE
  7. IMBRUVICA [Suspect]
     Active Substance: IBRUTINIB
     Indication: CHRONIC LYMPHOCYTIC LEUKAEMIA
     Route: 048
     Dates: start: 20161027
  8. ELIQUIS [Concomitant]
     Active Substance: APIXABAN
  9. PROPAFENONE. [Concomitant]
     Active Substance: PROPAFENONE
  10. LISINOPRIL. [Concomitant]
     Active Substance: LISINOPRIL
  11. MULTIVITAMINS [Concomitant]
     Active Substance: VITAMINS
  12. SYNTHROID [Concomitant]
     Active Substance: LEVOTHYROXINE SODIUM
  13. SIMVASTATIN. [Concomitant]
     Active Substance: SIMVASTATIN
  14. POTASSIUM BROMIDE [Concomitant]
     Active Substance: POTASSIUM BROMIDE
  15. DIAZEPAM. [Concomitant]
     Active Substance: DIAZEPAM
  16. ACETAMINOPHEN. [Concomitant]
     Active Substance: ACETAMINOPHEN

REACTIONS (2)
  - Pneumonia [Not Recovered/Not Resolved]
  - Heart rate irregular [Unknown]

NARRATIVE: CASE EVENT DATE: 2017
